FAERS Safety Report 25220851 (Version 1)
Quarter: 2025Q2

REPORT INFORMATION
  Report Type: Spontaneous
  Country: US (occurrence: None)
  Receive Date: 20250419
  Receipt Date: 20250419
  Transmission Date: 20250717
  Serious: No
  Sender: FDA-CTU
  Company Number: None

PATIENT
  Age: 62 Year
  Sex: Female
  Weight: 138.35 kg

DRUGS (1)
  1. ENBREL [Suspect]
     Active Substance: ETANERCEPT
     Indication: Psoriatic arthropathy
     Dosage: INJECT 50MG SUBCUTANEOUSLY ONCE  WEEKLY  AS DIRECTED.
     Route: 058
     Dates: start: 202502

REACTIONS (2)
  - Influenza [None]
  - Nasopharyngitis [None]
